FAERS Safety Report 5445450-X (Version None)
Quarter: 2007Q3

REPORT INFORMATION
  Report Type: 
  Country: None (occurrence: None)
  Receive Date: 20070731
  Receipt Date: 20070104
  Transmission Date: 20080115
  Serious: Yes (Other)
  Sender: FDA-Public Use
  Company Number: 150031USA

PATIENT
  Age: 51 Year
  Sex: Male
  Weight: 81.6475 kg

DRUGS (2)
  1. TRAMADOL HCL [Suspect]
     Indication: MUSCULOSKELETAL CHEST PAIN
     Dosage: 50 MG (50 MG, 1 IN 1 D), ORAL
     Route: 048
     Dates: start: 20061114, end: 20061114
  2. CLOPIDOGREL BISULFATE [Concomitant]

REACTIONS (6)
  - CONCUSSION [None]
  - FACIAL BONES FRACTURE [None]
  - FALL [None]
  - LOSS OF CONSCIOUSNESS [None]
  - STRESS FRACTURE [None]
  - TOOTH INJURY [None]
